FAERS Safety Report 4883695-8 (Version None)
Quarter: 2006Q1

REPORT INFORMATION
  Report Type: 
  Country: None (occurrence: None)
  Receive Date: 20060118
  Receipt Date: 20051207
  Transmission Date: 20060701
  Serious: Yes (Death, Hospitalization, Disabling, Other)
  Sender: FDA-Public Use
  Company Number: PHFR2005GB03963

PATIENT
  Age: 63 Year
  Sex: Female
  Weight: 60 kg

DRUGS (4)
  1. ZOMETA [Suspect]
     Indication: METASTASES TO BONE
     Dosage: 4 MG
     Route: 042
     Dates: start: 20030403, end: 20050316
  2. CYCLOPHOSPHAMIDE [Concomitant]
     Dosage: 480MG WEEKLY
     Route: 042
  3. MESNA [Concomitant]
     Dosage: 400MG X3
     Route: 048
  4. PREDNISOLONE [Concomitant]
     Dosage: 40 MG ALTERNATE DAYS
     Route: 048

REACTIONS (7)
  - MALIGNANT NEOPLASM PROGRESSION [None]
  - MULTIPLE MYELOMA [None]
  - OSTEONECROSIS [None]
  - PAIN IN JAW [None]
  - PANCYTOPENIA [None]
  - RADIATION INJURY [None]
  - RENAL FAILURE [None]
